FAERS Safety Report 14680107 (Version 3)
Quarter: 2018Q4

REPORT INFORMATION
  Report Type: Spontaneous
  Country: US (occurrence: US)
  Receive Date: 20180326
  Receipt Date: 20181002
  Transmission Date: 20190204
  Serious: Yes (Death, Hospitalization, Other)
  Sender: FDA-Public Use
  Company Number: US-BAYER-2018-054532

PATIENT
  Age: 78 Year
  Sex: Male
  Weight: 60.77 kg

DRUGS (11)
  1. XOFIGO [Suspect]
     Active Substance: RADIUM RA-223 DICHLORIDE
     Indication: PROSTATE CANCER METASTATIC
     Dosage: 100.8 ?CI, ONCE
     Route: 042
     Dates: start: 20180125, end: 20180125
  2. XOFIGO [Suspect]
     Active Substance: RADIUM RA-223 DICHLORIDE
     Indication: METASTASES TO BONE
  3. DOCETAXEL. [Concomitant]
     Active Substance: DOCETAXEL
     Dosage: UNK UNK, ONCE
     Dates: start: 20171102, end: 20171102
  4. QUETIAPINE. [Concomitant]
     Active Substance: QUETIAPINE
     Dosage: 25 MG, PRN
     Route: 048
     Dates: start: 201803
  5. FOLIC ACID. [Concomitant]
     Active Substance: FOLIC ACID
     Dosage: 1 MG, UNK
     Route: 048
  6. ACETAMINOPHEN. [Concomitant]
     Active Substance: ACETAMINOPHEN
     Indication: PYREXIA
     Dosage: 2 TABLETS EVERY 4 HOURS AS NEEDED
     Route: 048
     Dates: start: 201803
  7. FERROUS SULFATE. [Concomitant]
     Active Substance: FERROUS SULFATE
     Dosage: 325 MG, QD
     Route: 048
  8. ACETAMINOPHEN. [Concomitant]
     Active Substance: ACETAMINOPHEN
     Indication: PYREXIA
     Dosage: UNK UNK, Q4HR
     Route: 054
     Dates: start: 201803
  9. PANTOPRAZOLE [Concomitant]
     Active Substance: PANTOPRAZOLE
     Dosage: 40 MG, QD
     Route: 048
     Dates: start: 201803
  10. SINEMET [Concomitant]
     Active Substance: CARBIDOPA\LEVODOPA
     Indication: PARKINSON^S DISEASE
  11. METOPROLOL SUCCINATE. [Concomitant]
     Active Substance: METOPROLOL SUCCINATE
     Dosage: 25 MG, QD
     Route: 048

REACTIONS (15)
  - Somnolence [None]
  - Confusional state [None]
  - Prostate cancer metastatic [Fatal]
  - Muscle rigidity [None]
  - Bone marrow failure [Recovered/Resolved]
  - Cognitive disorder [None]
  - Pyrexia [None]
  - Encephalopathy [None]
  - Mental status changes [None]
  - Anaemia [None]
  - Faeces discoloured [None]
  - Gait disturbance [None]
  - Mental impairment [None]
  - Loss of consciousness [None]
  - Tremor [None]

NARRATIVE: CASE EVENT DATE: 20180125
